FAERS Safety Report 5326445-3 (Version None)
Quarter: 2007Q2

REPORT INFORMATION
  Report Type: 
  Country: None (occurrence: None)
  Receive Date: 20070516
  Receipt Date: 20070511
  Transmission Date: 20071010
  Serious: Yes (Other)
  Sender: FDA-Public Use
  Company Number: GB-JNJFOC-20070206105

PATIENT
  Sex: Male

DRUGS (1)
  1. RISPERDAL CONSTA [Suspect]
     Indication: SCHIZOPHRENIA, PARANOID TYPE
     Route: 030

REACTIONS (8)
  - ALANINE AMINOTRANSFERASE INCREASED [None]
  - APATHY [None]
  - DISTURBANCE IN ATTENTION [None]
  - DYSTONIA [None]
  - MEAN CELL VOLUME INCREASED [None]
  - RED BLOOD CELL COUNT DECREASED [None]
  - RESTLESS LEGS SYNDROME [None]
  - SOMNOLENCE [None]
